FAERS Safety Report 17052792 (Version 1)
Quarter: 2019Q4

REPORT INFORMATION
  Report Type: Report from Study
  Country: BR (occurrence: BR)
  Receive Date: 20191120
  Receipt Date: 20191120
  Transmission Date: 20200122
  Serious: Yes (Other)
  Sender: FDA-Public Use
  Company Number: BR-UCBSA-2019047646

PATIENT
  Age: 54 Year
  Sex: Female
  Weight: 58 kg

DRUGS (8)
  1. PURAN [Concomitant]
     Active Substance: LEVOTHYROXINE SODIUM
     Indication: THYROID DISORDER
  2. PREDNISONA [Concomitant]
     Active Substance: PREDNISONE
     Indication: INFECTION
  3. URBANIL [Concomitant]
     Active Substance: CLOBAZAM
     Indication: EPILEPSY
  4. ADVANTAN [Concomitant]
     Active Substance: METHYLPREDNISOLONE ACEPONATE
     Indication: DERMATITIS ALLERGIC
  5. TOPIRAMATO [Concomitant]
     Active Substance: TOPIRAMATE
     Indication: EPILEPSY
  6. LEVETIRACETAM. [Suspect]
     Active Substance: LEVETIRACETAM
     Indication: EPILEPSY
     Dosage: 10 MILLILITER, 3X/DAY (TID)
     Dates: start: 201811
  7. DEPAKENE [VALPROATE SODIUM] [Concomitant]
     Active Substance: VALPROATE SODIUM
     Indication: EPILEPSY
  8. AZITROMICINA [Concomitant]
     Active Substance: AZITHROMYCIN DIHYDRATE
     Indication: INFECTION

REACTIONS (5)
  - Post procedural infection [Recovered/Resolved]
  - Off label use [Unknown]
  - Seizure [Not Recovered/Not Resolved]
  - Drug ineffective [Unknown]
  - Sleep disorder [Unknown]

NARRATIVE: CASE EVENT DATE: 201811
